FAERS Safety Report 21365258 (Version 1)
Quarter: 2022Q3

REPORT INFORMATION
  Report Type: Spontaneous
  Country: US (occurrence: None)
  Receive Date: 20220921
  Receipt Date: 20220921
  Transmission Date: 20221027
  Serious: Yes (Other)
  Sender: FDA-Public Use
  Company Number: None

PATIENT
  Age: 50 Year
  Sex: Male

DRUGS (24)
  1. AMBRISENTAN [Suspect]
     Active Substance: AMBRISENTAN
     Indication: Pulmonary arterial hypertension
     Dosage: FREQUENCY : DAILY;?
     Route: 048
     Dates: start: 20220124
  2. SELEXIPAG [Suspect]
     Active Substance: SELEXIPAG
  3. TADALAFIL [Suspect]
     Active Substance: TADALAFIL
  4. LYRICA [Concomitant]
     Active Substance: PREGABALIN
  5. ASPIRIN [Concomitant]
     Active Substance: ASPIRIN
  6. FEROUS SULFATE [Concomitant]
  7. LIDOCAINE [Concomitant]
     Active Substance: LIDOCAINE
  8. XOPENEX HFA [Concomitant]
     Active Substance: LEVALBUTEROL TARTRATE
  9. OMEPRAZOLE [Concomitant]
     Active Substance: OMEPRAZOLE
  10. SPIRONOLACTONE [Concomitant]
     Active Substance: SPIRONOLACTONE
  11. IBUPROFEN [Concomitant]
     Active Substance: IBUPROFEN
  12. CYMBALTA [Concomitant]
     Active Substance: DULOXETINE HYDROCHLORIDE
  13. DIGOXIN [Concomitant]
     Active Substance: DIGOXIN
  14. INSULIN REGULAR HUMAN [Concomitant]
  15. INSULIN GLARGINE [Concomitant]
     Active Substance: INSULIN GLARGINE
  16. LOSARTAN [Concomitant]
     Active Substance: LOSARTAN
  17. BUMEX [Concomitant]
     Active Substance: BUMETANIDE
  18. ATORVASTATIN [Concomitant]
     Active Substance: ATORVASTATIN
  19. HYDRALAZINE [Concomitant]
     Active Substance: HYDRALAZINE HYDROCHLORIDE
  20. ALLOPURINOL [Concomitant]
     Active Substance: ALLOPURINOL
  21. CAPSAICIN TOP CREAM [Concomitant]
  22. NORTRIPTYLINE [Concomitant]
     Active Substance: NORTRIPTYLINE
  23. VITAMINS [Concomitant]
     Active Substance: VITAMINS
  24. IRON DEXTRAN [Concomitant]
     Active Substance: IRON DEXTRAN

REACTIONS (3)
  - Restlessness [None]
  - Tachycardia [None]
  - Hypertension [None]

NARRATIVE: CASE EVENT DATE: 20220830
